FAERS Safety Report 4409290-2 (Version None)
Quarter: 2004Q3

REPORT INFORMATION
  Report Type: 
  Country: None (occurrence: None)
  Receive Date: 20040722
  Receipt Date: 20040706
  Transmission Date: 20050211
  Serious: Yes (Other)
  Sender: FDA-Public Use
  Company Number: 2004-00169

PATIENT
  Age: 62 Year
  Sex: Male
  Weight: 75 kg

DRUGS (4)
  1. INTEGRILIN [Suspect]
     Indication: ACUTE CORONARY SYNDROME
     Dosage: SEE IMAGE
     Route: 041
     Dates: start: 20040701, end: 20040701
  2. INTEGRILIN [Suspect]
     Indication: ACUTE CORONARY SYNDROME
     Dosage: SEE IMAGE
     Route: 041
     Dates: start: 20040701, end: 20040701
  3. HEPARIN [Concomitant]
  4. ASPIRIN [Concomitant]

REACTIONS (3)
  - LABORATORY TEST ABNORMAL [None]
  - MEDICATION ERROR [None]
  - PULMONARY ALVEOLAR HAEMORRHAGE [None]
